FAERS Safety Report 7105998-9 (Version None)
Quarter: 2010Q4

REPORT INFORMATION
  Report Type: 
  Country: None (occurrence: None)
  Receive Date: 20101116
  Receipt Date: 20101112
  Transmission Date: 20110411
  Serious: Yes (Death, Other)
  Sender: FDA-Public Use
  Company Number: DE-BRISTOL-MYERS SQUIBB COMPANY-15358526

PATIENT
  Age: 77 Year
  Sex: Male
  Weight: 68 kg

DRUGS (4)
  1. SPRYCEL [Suspect]
     Indication: CHRONIC MYELOID LEUKAEMIA
     Route: 048
     Dates: start: 20100909
  2. VALORON N [Concomitant]
     Indication: CARDIAC FAILURE
  3. SPIRONOLACTONE [Concomitant]
     Route: 048
  4. FUROSEMIDE [Concomitant]
     Dosage: 1DF= 40 (UNITS NOT SPECIFIED).
     Route: 048

REACTIONS (3)
  - CARDIAC FAILURE [None]
  - DEPRESSION [None]
  - EMPHYSEMA [None]
